FAERS Safety Report 9392833 (Version 1)
Quarter: 2013Q3

REPORT INFORMATION
  Report Type: Spontaneous
  Country: JP (occurrence: JP)
  Receive Date: 20130710
  Receipt Date: 20130710
  Transmission Date: 20140515
  Serious: Yes (Death, Other)
  Sender: FDA-Public Use
  Company Number: PHHY2010JP73223

PATIENT
  Age: 70 Year
  Sex: Male

DRUGS (8)
  1. AFINITOR [Suspect]
     Indication: RENAL CELL CARCINOMA
     Dosage: 10 MG, DAILY
     Route: 048
     Dates: start: 20100906, end: 20100918
  2. AFINITOR [Suspect]
     Dosage: 5 MG, DAILY
     Route: 048
     Dates: start: 20100930, end: 20101007
  3. OXYCONTIN [Concomitant]
     Indication: RENAL CELL CARCINOMA
     Dosage: 10 MG, UNK
     Route: 048
     Dates: start: 20100906, end: 20100930
  4. DEPAKENE-R [Concomitant]
     Indication: RENAL CELL CARCINOMA
     Dosage: 400 MG, UNK
     Route: 048
     Dates: start: 20100910, end: 20100920
  5. TAKEPRON [Concomitant]
     Dosage: 15 MG, UNK
     Route: 048
     Dates: start: 20100910, end: 20100921
  6. GASLON [Concomitant]
     Dosage: 4 MG, UNK
     Route: 048
     Dates: start: 20100910, end: 20100921
  7. DUROTEP JANSSEN [Concomitant]
     Indication: RENAL CELL CARCINOMA
     Dosage: 0.7 MG, UNK
     Route: 048
     Dates: start: 20100930, end: 20101008
  8. OMEGACIN [Concomitant]
     Dosage: 0.3 MG, UNK
     Route: 048
     Dates: start: 20101005, end: 20101008

REACTIONS (6)
  - White blood cell count decreased [Recovered/Resolved]
  - Neutrophil count decreased [Recovered/Resolved]
  - Platelet count decreased [Not Recovered/Not Resolved]
  - C-reactive protein increased [Not Recovered/Not Resolved]
  - Renal cell carcinoma [Fatal]
  - Malignant neoplasm progression [Fatal]
